FAERS Safety Report 6501923-X (Version None)
Quarter: 2009Q4

REPORT INFORMATION
  Report Type: 
  Country: None (occurrence: None)
  Receive Date: 20091216
  Receipt Date: 20091210
  Transmission Date: 20100525
  Serious: Yes (Hospitalization, Other)
  Sender: FDA-Public Use
  Company Number: UG-GILEAD-2009-0021135

PATIENT
  Sex: Female

DRUGS (5)
  1. TRUVADA [Suspect]
     Indication: HIV INFECTION
     Dates: start: 20071222, end: 20080806
  2. EMTRIVA [Suspect]
     Indication: HIV INFECTION
     Dates: start: 20080806, end: 20081203
  3. NEVIRAPINE [Concomitant]
     Indication: HIV INFECTION
     Dates: start: 20071222
  4. ZIDOVUDINE [Concomitant]
     Indication: HIV INFECTION
     Dates: start: 20080806
  5. COTRIMOXAZOLE [Concomitant]
     Dates: start: 20070411

REACTIONS (2)
  - PRE-ECLAMPSIA [None]
  - STILLBIRTH [None]
